FAERS Safety Report 8539320-8 (Version None)
Quarter: 2012Q3

REPORT INFORMATION
  Report Type: 
  Country: None (occurrence: None)
  Receive Date: 20120726
  Receipt Date: 20110727
  Transmission Date: 20120928
  Serious: No
  Sender: FDA-Public Use
  Company Number: US-ASTRAZENECA-2011SE44916

PATIENT
  Sex: Female

DRUGS (6)
  1. NORVASC [Concomitant]
     Indication: HYPERTENSION
  2. LISINOPRIL [Concomitant]
     Indication: HYPERTENSION
  3. SEROQUEL [Suspect]
     Route: 048
  4. PROZAC [Concomitant]
  5. XANEX [Concomitant]
     Indication: ANXIETY
  6. HYDROCODONE [Concomitant]
     Indication: BACK PAIN

REACTIONS (4)
  - DRUG DOSE OMISSION [None]
  - SLEEP DISORDER [None]
  - NAUSEA [None]
  - MALAISE [None]
